FAERS Safety Report 8074015-9 (Version None)
Quarter: 2012Q1

REPORT INFORMATION
  Report Type: 
  Country: None (occurrence: None)
  Receive Date: 20120126
  Receipt Date: 20111202
  Transmission Date: 20120608
  Serious: Yes (Other)
  Sender: FDA-Public Use
  Company Number: BR-ABBOTT-11P-020-0880280-00

PATIENT
  Sex: Female
  Weight: 59 kg

DRUGS (12)
  1. LIPITOR [Concomitant]
     Indication: BLOOD CHOLESTEROL
     Route: 048
  2. LEVOTHYROXINE SODIUM [Concomitant]
     Indication: HYPOTHYROIDISM
     Route: 048
  3. PRELONE [Concomitant]
     Indication: ARTHRITIS
     Dates: start: 20060101
  4. HUMIRA [Suspect]
     Indication: RHEUMATOID ARTHRITIS
     Route: 058
     Dates: start: 20111103, end: 20111222
  5. VITAMIN B COMPLEX CAP [Concomitant]
     Indication: OSTEOPENIA
     Route: 048
  6. ASPIRIN [Concomitant]
     Indication: ANTICOAGULANT THERAPY
     Route: 048
  7. ZOLEDRONOC ACID [Concomitant]
     Indication: BONE DISORDER
     Route: 042
  8. METOPROLOL SUCCINATE [Concomitant]
     Indication: HYPERTENSION
     Route: 048
  9. CLOPIDOGREL [Concomitant]
     Indication: ANTICOAGULANT THERAPY
     Route: 048
  10. PANTOPRAZOLE [Concomitant]
     Indication: GASTRITIS
     Route: 048
  11. CALCIUM [Concomitant]
     Indication: OSTEOPENIA
     Route: 048
  12. ACETYLSALICYLIC ACID SRT [Concomitant]
     Indication: PRODUCT USED FOR UNKNOWN INDICATION

REACTIONS (2)
  - CORONARY ARTERY STENOSIS [None]
  - MYOCARDIAL ISCHAEMIA [None]
